APPROVED DRUG PRODUCT: CARVEDILOL
Active Ingredient: CARVEDILOL
Strength: 12.5MG
Dosage Form/Route: TABLET;ORAL
Application: A077316 | Product #003
Applicant: PHARMOBEDIENT CONSULTING LLC
Approved: Sep 5, 2007 | RLD: No | RS: No | Type: DISCN